FAERS Safety Report 14618740 (Version 1)
Quarter: 2018Q1

REPORT INFORMATION
  Report Type: Spontaneous
  Country: US (occurrence: US)
  Receive Date: 20180309
  Receipt Date: 20180309
  Transmission Date: 20180509
  Serious: No
  Sender: FDA-Public Use
  Company Number: None

PATIENT
  Sex: Female
  Weight: 98.43 kg

DRUGS (2)
  1. FORTEO [Suspect]
     Active Substance: TERIPARATIDE
     Indication: SENILE OSTEOPOROSIS
     Route: 058
     Dates: start: 201606
  2. FORTEO [Suspect]
     Active Substance: TERIPARATIDE
     Indication: POLYARTERITIS NODOSA
     Route: 058
     Dates: start: 201606

REACTIONS (2)
  - Unevaluable event [None]
  - Pneumonia [None]
